FAERS Safety Report 23289911 (Version 7)
Quarter: 2025Q1

REPORT INFORMATION
  Report Type: Spontaneous
  Country: FR (occurrence: FR)
  Receive Date: 20231212
  Receipt Date: 20250121
  Transmission Date: 20250409
  Serious: Yes (Death, Life-Threatening, Other)
  Sender: AUROBINDO
  Company Number: FR-AFSSAPS-AN2023001509

PATIENT
  Age: 62 Year
  Sex: Male

DRUGS (17)
  1. DICLOFENAC [Interacting]
     Active Substance: DICLOFENAC
     Indication: Back pain
     Dosage: 50 MILLIGRAM, ONCE A DAY
     Route: 048
     Dates: start: 20231013
  2. NAPROXEN [Interacting]
     Active Substance: NAPROXEN
     Indication: Back pain
     Dosage: 550 MILLIGRAM, ONCE A DAY
     Route: 048
     Dates: start: 20231013
  3. ARIXTRA [Interacting]
     Active Substance: FONDAPARINUX SODIUM
     Indication: Infarction
     Route: 058
     Dates: start: 20231027
  4. TICAGRELOR [Interacting]
     Active Substance: TICAGRELOR
     Indication: Infarction
     Route: 048
     Dates: start: 20231027, end: 20231027
  5. HEPARIN SODIUM [Interacting]
     Active Substance: HEPARIN SODIUM
     Indication: Infarction
     Route: 042
     Dates: start: 20231027, end: 2023
  6. KARDEGIC [Interacting]
     Active Substance: ASPIRIN DL-LYSINE
     Indication: Cardiovascular event prophylaxis
     Dosage: 1 DOSAGE FORM, ONCE A DAY
     Route: 048
     Dates: start: 2023, end: 2023
  7. MEDROL [Interacting]
     Active Substance: METHYLPREDNISOLONE
     Indication: Back pain
     Dosage: 48 MILLIGRAM, ONCE A DAY
     Route: 048
     Dates: start: 20231013, end: 20231016
  8. MEDROL [Interacting]
     Active Substance: METHYLPREDNISOLONE
     Dosage: 32 MILLIGRAM, ONCE A DAY
     Route: 048
     Dates: start: 20231017, end: 20231021
  9. MEDROL [Interacting]
     Active Substance: METHYLPREDNISOLONE
     Dosage: 16 MILLIGRAM, ONCE A DAY
     Route: 048
     Dates: start: 20231022, end: 20231026
  10. ROSUVASTATIN [Concomitant]
     Active Substance: ROSUVASTATIN
     Indication: Product used for unknown indication
     Dosage: 10 MILLIGRAM, ONCE A DAY
     Route: 048
  11. NITRENDIPINE [Concomitant]
     Active Substance: NITRENDIPINE
     Indication: Product used for unknown indication
     Dosage: 20 MILLIGRAM, ONCE A DAY
     Route: 048
  12. DAPAGLIFLOZIN [Concomitant]
     Active Substance: DAPAGLIFLOZIN
     Indication: Product used for unknown indication
     Dosage: 10 MILLIGRAM, ONCE A DAY
     Route: 048
  13. HYDROCHLOROTHIAZIDE [Concomitant]
     Active Substance: HYDROCHLOROTHIAZIDE
     Indication: Product used for unknown indication
     Dosage: 12.5 MILLIGRAM, ONCE A DAY
     Route: 048
  14. METFORMIN HYDROCHLORIDE\SAXAGLIPTIN [Concomitant]
     Active Substance: METFORMIN HYDROCHLORIDE\SAXAGLIPTIN
     Indication: Product used for unknown indication
     Dosage: 2 DOSAGE FORM, ONCE A DAY
     Route: 048
  15. CANDESARTAN CILEXETIL [Concomitant]
     Active Substance: CANDESARTAN CILEXETIL
     Indication: Product used for unknown indication
     Dosage: 32 MILLIGRAM, ONCE A DAY
     Route: 048
  16. ACETAMINOPHEN\CAFFEINE [Concomitant]
     Active Substance: ACETAMINOPHEN\CAFFEINE
     Indication: Product used for unknown indication
     Route: 065
  17. REPAGLINIDE [Concomitant]
     Active Substance: REPAGLINIDE
     Indication: Product used for unknown indication
     Dosage: 1 MILLIGRAM (IN THE MORNING)
     Route: 065

REACTIONS (4)
  - Shock haemorrhagic [Fatal]
  - Gastroduodenal ulcer [Fatal]
  - Drug interaction [Fatal]
  - Pulmonary embolism [Fatal]

NARRATIVE: CASE EVENT DATE: 20231027
